FAERS Safety Report 8471783-9 (Version None)
Quarter: 2012Q2

REPORT INFORMATION
  Report Type: 
  Country: None (occurrence: None)
  Receive Date: 20120627
  Receipt Date: 20120620
  Transmission Date: 20120825
  Serious: Yes (Other)
  Sender: FDA-Public Use
  Company Number: US-JNJFOC-20120611215

PATIENT
  Age: 57 Year
  Sex: Female
  Weight: 165.56 kg

DRUGS (3)
  1. STELARA [Suspect]
     Route: 058
     Dates: start: 20111205
  2. STELARA [Suspect]
     Route: 058
     Dates: start: 20120101
  3. STELARA [Suspect]
     Indication: PSORIASIS
     Route: 058
     Dates: start: 20120613

REACTIONS (2)
  - HYSTERECTOMY [None]
  - PSORIASIS [None]
